FAERS Safety Report 22000464 (Version 1)
Quarter: 2023Q1

REPORT INFORMATION
  Report Type: Spontaneous
  Country: US (occurrence: None)
  Receive Date: 20230215
  Receipt Date: 20230215
  Transmission Date: 20230418
  Serious: Yes (Hospitalization)
  Sender: FDA-Public Use
  Company Number: None

PATIENT
  Age: 77 Year
  Sex: Female
  Weight: 67 kg

DRUGS (1)
  1. METHOTREXATE [Suspect]
     Active Substance: METHOTREXATE
     Dosage: OTHER FREQUENCY : ONCE WEEKLY;?
     Route: 048

REACTIONS (6)
  - Dyspnoea [None]
  - Stomatitis [None]
  - Chills [None]
  - Pyrexia [None]
  - Pharyngitis [None]
  - Tremor [None]

NARRATIVE: CASE EVENT DATE: 20230211
